FAERS Safety Report 10049834 (Version 1)
Quarter: 2014Q1

REPORT INFORMATION
  Report Type: Spontaneous
  Country: US (occurrence: None)
  Receive Date: 20140331
  Receipt Date: 20140331
  Transmission Date: 20141002
  Serious: Yes (Hospitalization)
  Sender: FDA-Public Use
  Company Number: None

PATIENT
  Age: 2 Year
  Sex: Male
  Weight: 11.9 kg

DRUGS (2)
  1. BUSULFAN [Suspect]
  2. MELPHALAN [Concomitant]

REACTIONS (5)
  - Venoocclusive liver disease [None]
  - Continuous haemodiafiltration [None]
  - Hypotension [None]
  - Renal failure acute [None]
  - Ascites [None]
